FAERS Safety Report 6540900-X (Version None)
Quarter: 2010Q1

REPORT INFORMATION
  Report Type: 
  Country: None (occurrence: None)
  Receive Date: 20100118
  Receipt Date: 20100113
  Transmission Date: 20100710
  Serious: Yes (Death, Hospitalization, Other)
  Sender: FDA-Public Use
  Company Number: PHEH2009US14439

PATIENT
  Sex: Male

DRUGS (1)
  1. EXJADE [Suspect]
     Dosage: 2000 MG, QD
     Route: 048
     Dates: start: 20090501

REACTIONS (27)
  - ANAEMIA OF CHRONIC DISEASE [None]
  - ATRIAL FIBRILLATION [None]
  - BLOOD CREATININE INCREASED [None]
  - BODY TEMPERATURE INCREASED [None]
  - CATARACT [None]
  - CATARACT OPERATION [None]
  - CELLULITIS [None]
  - CHOLECYSTECTOMY [None]
  - COLECTOMY [None]
  - DIABETES MELLITUS [None]
  - ENDOTRACHEAL INTUBATION [None]
  - ESCHERICHIA BACTERAEMIA [None]
  - HAEMATOCRIT DECREASED [None]
  - HAEMOGLOBIN DECREASED [None]
  - HYPOKALAEMIA [None]
  - HYPOTENSION [None]
  - KLEBSIELLA INFECTION [None]
  - METABOLIC ACIDOSIS [None]
  - OEDEMA PERIPHERAL [None]
  - PLATELET COUNT DECREASED [None]
  - PROTHROMBIN TIME PROLONGED [None]
  - RENAL FAILURE [None]
  - RESPIRATORY FAILURE [None]
  - SEPSIS [None]
  - SEPTIC SHOCK [None]
  - UNRESPONSIVE TO STIMULI [None]
  - URINARY TRACT INFECTION [None]
